FAERS Safety Report 11496522 (Version 1)
Quarter: 2015Q3

REPORT INFORMATION
  Report Type: Spontaneous
  Country: US (occurrence: US)
  Receive Date: 20150911
  Receipt Date: 20150911
  Transmission Date: 20151125
  Serious: No
  Sender: FDA-Public Use
  Company Number: US-ASTELLAS-2015US020015

PATIENT
  Weight: 50 kg

DRUGS (1)
  1. CRESEMBA [Suspect]
     Active Substance: ISAVUCONAZONIUM SULFATE
     Indication: SINUSITIS FUNGAL
     Dosage: UNKNOWN DOSE AND FREQ.
     Route: 065

REACTIONS (1)
  - Product use issue [Unknown]
